FAERS Safety Report 13407051 (Version 1)
Quarter: 2017Q2

REPORT INFORMATION
  Report Type: Spontaneous
  Country: CH (occurrence: CH)
  Receive Date: 20170405
  Receipt Date: 20170405
  Transmission Date: 20170830
  Serious: Yes (Disabling)
  Sender: FDA-Public Use
  Company Number: CH-ABBVIE-17P-151-1932895-00

PATIENT
  Age: 51 Year
  Sex: Male

DRUGS (22)
  1. TEMESTA (LORAZEPAM) [Suspect]
     Active Substance: LORAZEPAM
     Indication: DEPRESSIVE SYMPTOM
     Route: 048
  2. IMODIUM (LOPERAMIDE HYDROCHLORIDE) [Concomitant]
     Indication: PRODUCT USED FOR UNKNOWN INDICATION
  3. ISENTRESS (RALTELGRAVIR) [Concomitant]
     Indication: PRODUCT USED FOR UNKNOWN INDICATION
  4. DAFALGAN (PARACETAMOL) [Concomitant]
     Indication: PRODUCT USED FOR UNKNOWN INDICATION
  5. ASPIRIN CARDIO (ACETYLSALICYLIC ACID) [Concomitant]
     Active Substance: ASPIRIN
     Indication: PRODUCT USED FOR UNKNOWN INDICATION
  6. NEXIUM [Concomitant]
     Active Substance: ESOMEPRAZOLE MAGNESIUM
     Indication: PRODUCT USED FOR UNKNOWN INDICATION
  7. DEPAKINE CHRONO [Suspect]
     Active Substance: VALPROATE SODIUM
     Indication: PRODUCT USED FOR UNKNOWN INDICATION
     Route: 048
  8. QUETIAPINE. [Suspect]
     Active Substance: QUETIAPINE
     Indication: DEPRESSIVE SYMPTOM
     Route: 048
     Dates: start: 20170221, end: 20170313
  9. ESCITALOPRAM [Suspect]
     Active Substance: ESCITALOPRAM OXALATE
     Indication: PRODUCT USED FOR UNKNOWN INDICATION
     Route: 048
  10. ZIAGEN (ABACAVIR SULFATE) [Concomitant]
     Indication: PRODUCT USED FOR UNKNOWN INDICATION
  11. LAMICTAL [Suspect]
     Active Substance: LAMOTRIGINE
     Indication: PRODUCT USED FOR UNKNOWN INDICATION
     Route: 065
  12. COLESTYRAMIN (COLESTYRAMINE) [Concomitant]
     Indication: PRODUCT USED FOR UNKNOWN INDICATION
  13. QUETIAPINE. [Suspect]
     Active Substance: QUETIAPINE
     Route: 048
     Dates: start: 20170313
  14. INTELENCE [Concomitant]
     Active Substance: ETRAVIRINE
     Indication: PRODUCT USED FOR UNKNOWN INDICATION
  15. CALCIPARINE [Concomitant]
     Active Substance: HEPARIN CALCIUM
     Indication: PRODUCT USED FOR UNKNOWN INDICATION
  16. ZEFFIX (LAMIVUDINE) [Concomitant]
     Indication: PRODUCT USED FOR UNKNOWN INDICATION
  17. METAMUCIL (PLANTAGO OVATA) [Concomitant]
     Indication: PRODUCT USED FOR UNKNOWN INDICATION
  18. BUSCOPAN (HYOSCINE BUTYLBROMIDE) [Concomitant]
     Indication: PRODUCT USED FOR UNKNOWN INDICATION
  19. QUETIAPINE. [Suspect]
     Active Substance: QUETIAPINE
     Indication: ANXIETY
     Route: 048
     Dates: start: 20170218
  20. TEMESTA (LORAZEPAM) [Suspect]
     Active Substance: LORAZEPAM
     Indication: ANXIETY
     Route: 048
     Dates: start: 20170218
  21. VI-DE 3 (COLECALCIFEROL) [Concomitant]
     Indication: PRODUCT USED FOR UNKNOWN INDICATION
  22. ZOLPIDEM [Concomitant]
     Active Substance: ZOLPIDEM\ZOLPIDEM TARTRATE
     Indication: PRODUCT USED FOR UNKNOWN INDICATION

REACTIONS (4)
  - Somnolence [Recovered/Resolved]
  - Psychomotor retardation [Recovered/Resolved]
  - Tremor [Recovering/Resolving]
  - Muscle rigidity [Recovered/Resolved]

NARRATIVE: CASE EVENT DATE: 20170310
